FAERS Safety Report 7920564-0 (Version None)
Quarter: 2011Q4

REPORT INFORMATION
  Report Type: 
  Country: None (occurrence: None)
  Receive Date: 20111117
  Receipt Date: 20110810
  Transmission Date: 20120403
  Serious: No
  Sender: FDA-Public Use
  Company Number: US-BAYER-2011-073084

PATIENT
  Age: 19 Year
  Sex: Female
  Weight: 55 kg

DRUGS (2)
  1. ALEVE (CAPLET) [Suspect]
     Dosage: UNK
     Route: 048
     Dates: start: 20110809
  2. NYQUIL [Suspect]
     Dosage: 30 ML, UNK
     Route: 048
     Dates: start: 20110809

REACTIONS (3)
  - PELVIC PAIN [None]
  - NAUSEA [None]
  - CHEST PAIN [None]
